FAERS Safety Report 6421668-4 (Version None)
Quarter: 2009Q4

REPORT INFORMATION
  Report Type: 
  Country: None (occurrence: None)
  Receive Date: 20091029
  Receipt Date: 20091029
  Transmission Date: 20100525
  Serious: Yes (Disabling)
  Sender: FDA-Public Use
  Company Number: None

PATIENT
  Age: 70 Year
  Sex: Male

DRUGS (1)
  1. CASPOFUNGIN ACETATE [Suspect]
     Indication: RETROPERITONEAL ABSCESS
     Dates: start: 20090116, end: 20090116

REACTIONS (10)
  - CHILLS [None]
  - DEHYDRATION [None]
  - DIZZINESS [None]
  - DYSPNOEA [None]
  - NECROSIS [None]
  - OXYGEN SATURATION DECREASED [None]
  - PANCREATITIS [None]
  - RETROPERITONEAL ABSCESS [None]
  - TACHYCARDIA [None]
  - TREMOR [None]
